FAERS Safety Report 23867118 (Version 1)
Quarter: 2024Q2

REPORT INFORMATION
  Report Type: Report from Study
  Country: US (occurrence: US)
  Receive Date: 20240517
  Receipt Date: 20240517
  Transmission Date: 20240716
  Serious: Yes (Death, Other)
  Sender: FDA-Public Use
  Company Number: US-UCBSA-2024017243

PATIENT
  Sex: Female
  Weight: 180 kg

DRUGS (1)
  1. ROTIGOTINE [Suspect]
     Active Substance: ROTIGOTINE
     Indication: Restless legs syndrome
     Dosage: 1 MILLIGRAM, ONCE DAILY (QD)
     Route: 062
     Dates: end: 20240406

REACTIONS (3)
  - Myocardial infarction [Fatal]
  - Respiratory distress [Unknown]
  - Sleep deficit [Unknown]
